FAERS Safety Report 7760131 (Version 2)
Quarter: 2013Q2

REPORT INFORMATION
  Report Type: Other
  Country: ES (occurrence: ES)
  Receive Date: 20110113
  Receipt Date: 20130425
  Transmission Date: 20140414
  Serious: Yes (Other)
  Sender: FDA-Public Use
  Company Number: ES-BRISTOL-MYERS SQUIBB COMPANY-15480601

PATIENT
  Age: 60 Year
  Sex: Female

DRUGS (10)
  1. ERBITUX [Suspect]
     Indication: HEAD AND NECK CANCER
     Dosage: ALSO 400MG/M2?INTERRUPTED FOR 3WK,RESTARTED ON MAR08
     Dates: end: 20080527
  2. CARBOPLATIN [Suspect]
     Indication: HEAD AND NECK CANCER
     Dosage: 21DAY CYCLES
     Dates: start: 200707
  3. 5-FLUOROURACIL [Suspect]
     Indication: HEAD AND NECK CANCER
     Dosage: CONTINUOUS INF FOR 4D
     Dates: start: 200707
  4. CISPLATIN [Concomitant]
     Indication: HEAD AND NECK CANCER
     Dosage: 3 DOSES ON DAYS 1,22 AND 43
  5. FENTANYL [Concomitant]
     Indication: PAIN MANAGEMENT
     Dosage: ALSO 25MCG 1 IN 72 HR
     Route: 061
     Dates: start: 20070608
  6. FENTANYL [Concomitant]
     Indication: ANALGESIC THERAPY
     Dosage: ALSO 25MCG 1 IN 72 HR
     Route: 061
     Dates: start: 20070608
  7. MORPHINE [Concomitant]
     Indication: PAIN MANAGEMENT
     Dosage: ALSO 2.5MG/4 HR
     Route: 048
     Dates: start: 20070608
  8. MORPHINE [Concomitant]
     Indication: ANALGESIC THERAPY
     Dosage: ALSO 2.5MG/4 HR
     Route: 048
     Dates: start: 20070608
  9. DICLOFENAC [Concomitant]
     Indication: PAIN MANAGEMENT
     Dosage: 200MG?FORM:SUPPOSITORY
     Dates: start: 20070608
  10. GABAPENTIN [Concomitant]
     Indication: PAIN MANAGEMENT
     Dosage: 900MG
     Route: 048

REACTIONS (8)
  - Anaemia [Unknown]
  - Nausea [Unknown]
  - Neutropenia [Unknown]
  - Decreased appetite [Unknown]
  - Vomiting [Unknown]
  - Asthenia [Unknown]
  - Mucosal inflammation [Recovered/Resolved]
  - Dermatitis acneiform [Unknown]
